FAERS Safety Report 4323133-7 (Version None)
Quarter: 2004Q1

REPORT INFORMATION
  Report Type: 
  Country: None (occurrence: None)
  Receive Date: 20040324
  Receipt Date: 20040324
  Transmission Date: 20041129
  Serious: Yes (Other)
  Sender: FDA-Public Use
  Company Number: None

PATIENT
  Age: 51 Year
  Sex: Female
  Weight: 82.1918 kg

DRUGS (1)
  1. PAROXETINE 30 MG [Suspect]
     Indication: DEPRESSION
     Dosage: 1 TAB DAILY

REACTIONS (5)
  - ABDOMINAL PAIN [None]
  - EATING DISORDER [None]
  - GASTROINTESTINAL DISORDER [None]
  - NAUSEA [None]
  - VOMITING [None]
